FAERS Safety Report 9914846 (Version 2)
Quarter: 2014Q1

REPORT INFORMATION
  Report Type: Spontaneous
  Country: US (occurrence: US)
  Receive Date: 20140220
  Receipt Date: 20140220
  Transmission Date: 20141002
  Serious: Yes (Death, Hospitalization)
  Sender: FDA-Public Use
  Company Number: US-JNJFOC-20140203411

PATIENT
  Age: 58 Year
  Sex: Male
  Weight: 108.98 kg

DRUGS (27)
  1. IMBRUVICA [Suspect]
     Indication: CHRONIC LYMPHOCYTIC LEUKAEMIA
     Route: 048
     Dates: start: 20131129, end: 20140116
  2. ADVAIR [Concomitant]
     Indication: RESPIRATORY TRACT INFLAMMATION
  3. RITUXAN [Concomitant]
     Indication: CHRONIC LYMPHOCYTIC LEUKAEMIA
     Dates: start: 20131214
  4. RITUXAN [Concomitant]
     Indication: CHRONIC LYMPHOCYTIC LEUKAEMIA
     Dates: start: 20131206
  5. RITUXAN [Concomitant]
     Indication: CHRONIC LYMPHOCYTIC LEUKAEMIA
     Dates: start: 20140125
  6. LEVAQUIN [Concomitant]
     Indication: SINUSITIS
  7. LEVAQUIN [Concomitant]
     Indication: BRONCHITIS
  8. TAMIFLU [Concomitant]
     Indication: ADENOVIRUS INFECTION
  9. KEFLEX [Concomitant]
     Indication: RESPIRATORY DISORDER
     Route: 048
  10. GAMMAGARD [Concomitant]
     Indication: BLOOD IMMUNOGLOBULIN G DECREASED
     Route: 042
     Dates: start: 20131226
  11. MEDROL [Concomitant]
     Indication: RESPIRATORY TRACT INFLAMMATION
     Dosage: DOSEPACK
     Dates: start: 20131231
  12. ABILIFY [Concomitant]
     Indication: PRODUCT USED FOR UNKNOWN INDICATION
  13. ALBUTEROL [Concomitant]
     Indication: PRODUCT USED FOR UNKNOWN INDICATION
  14. ALLOPURINOL [Concomitant]
     Indication: PRODUCT USED FOR UNKNOWN INDICATION
  15. ATOVAQUONE [Concomitant]
     Indication: PRODUCT USED FOR UNKNOWN INDICATION
  16. CLOBETASOL [Concomitant]
     Indication: PRODUCT USED FOR UNKNOWN INDICATION
  17. COLACE [Concomitant]
     Indication: PRODUCT USED FOR UNKNOWN INDICATION
  18. LOMOTIL [Concomitant]
     Indication: PRODUCT USED FOR UNKNOWN INDICATION
  19. LACTULOSE [Concomitant]
     Indication: CONSTIPATION
  20. LAMICTAL [Concomitant]
     Indication: PRODUCT USED FOR UNKNOWN INDICATION
  21. MUCINEX [Concomitant]
     Indication: PRODUCT USED FOR UNKNOWN INDICATION
  22. MUPIROCIN [Concomitant]
     Indication: PRODUCT USED FOR UNKNOWN INDICATION
  23. ZOFRAN [Concomitant]
     Indication: PRODUCT USED FOR UNKNOWN INDICATION
  24. PROCHLORPERAZINE [Concomitant]
     Indication: PRODUCT USED FOR UNKNOWN INDICATION
  25. PROTONIX [Concomitant]
     Indication: PRODUCT USED FOR UNKNOWN INDICATION
  26. PROZAC [Concomitant]
     Indication: PRODUCT USED FOR UNKNOWN INDICATION
  27. VALACYCLOVIR HYDROCHLORIDE [Concomitant]
     Indication: PRODUCT USED FOR UNKNOWN INDICATION

REACTIONS (4)
  - Chronic lymphocytic leukaemia [Fatal]
  - Metabolic acidosis [Fatal]
  - Cardiogenic shock [Fatal]
  - Bronchopulmonary aspergillosis [Recovering/Resolving]
